FAERS Safety Report 7006223-X (Version None)
Quarter: 2010Q3

REPORT INFORMATION
  Report Type: 
  Country: None (occurrence: None)
  Receive Date: 20100917
  Receipt Date: 20100903
  Transmission Date: 20110219
  Serious: Yes (Other)
  Sender: FDA-Public Use
  Company Number: AUR-APL-2010-02177

PATIENT
  Sex: Male

DRUGS (2)
  1. RISPERIDONE [Suspect]
     Dosage: 2MG, ORAL
     Route: 048
  2. RISPERDAL CONSTA [Suspect]
     Dosage: 25MG, IM
     Route: 030

REACTIONS (1)
  - PHYSICAL ASSAULT [None]
